FAERS Safety Report 8848529 (Version 2)
Quarter: 2013Q1

REPORT INFORMATION
  Report Type: Spontaneous
  Country: IT (occurrence: IT)
  Receive Date: 20121018
  Receipt Date: 20130319
  Transmission Date: 20140127
  Serious: No
  Sender: FDA-Public Use
  Company Number: IT-JNJFOC-20121005784

PATIENT
  Age: 82 Year
  Sex: Male

DRUGS (6)
  1. DUROGESIC [Suspect]
     Indication: PAIN
     Route: 062
     Dates: start: 20120927, end: 20120928
  2. PRINZIDE [Concomitant]
     Route: 048
  3. PRADIF [Concomitant]
     Route: 048
  4. CARDIOASPIRIN [Concomitant]
     Route: 048
  5. SIMVASTIN [Concomitant]
     Route: 048
  6. LYRICA [Concomitant]
     Indication: PRODUCT USED FOR UNKNOWN INDICATION
     Route: 065

REACTIONS (2)
  - Vomiting [Recovered/Resolved with Sequelae]
  - Inappropriate schedule of drug administration [Unknown]
